FAERS Safety Report 8105778-1 (Version None)
Quarter: 2012Q1

REPORT INFORMATION
  Report Type: 
  Country: None (occurrence: None)
  Receive Date: 20120201
  Receipt Date: 20120130
  Transmission Date: 20120608
  Serious: Yes (Other)
  Sender: FDA-Public Use
  Company Number: US-PFIZER INC-2010065722

PATIENT
  Sex: Female
  Weight: 108.84 kg

DRUGS (5)
  1. REVATIO [Suspect]
     Indication: PULMONARY HYPERTENSION
     Dosage: 20 MG, 3X/DAY
     Route: 048
     Dates: start: 20100201
  2. VALSARTAN [Suspect]
     Indication: CARDIAC DISORDER
     Dosage: 160 MG, 1X/DAY
     Route: 048
  3. REVATIO [Suspect]
     Dosage: UNK
  4. VALSARTAN [Suspect]
     Indication: HYPERTENSION
  5. LASIX [Concomitant]
     Indication: DIURETIC THERAPY
     Dosage: 20 MG, AS NEEDED

REACTIONS (4)
  - DYSPNOEA [None]
  - MYALGIA [None]
  - RASH [None]
  - FLUSHING [None]
